FAERS Safety Report 7226345-8 (Version None)
Quarter: 2011Q1

REPORT INFORMATION
  Report Type: 
  Country: None (occurrence: None)
  Receive Date: 20110114
  Receipt Date: 20110110
  Transmission Date: 20110831
  Serious: Yes (Hospitalization)
  Sender: FDA-Public Use
  Company Number: PHHY2010TW87567

PATIENT
  Sex: Male
  Weight: 51.5 kg

DRUGS (1)
  1. ALISKIREN [Suspect]
     Indication: HYPERTENSION
     Dosage: 150 MG
     Route: 048
     Dates: start: 20100618

REACTIONS (3)
  - BREATH SOUNDS ABNORMAL [None]
  - PLEURAL EFFUSION [None]
  - DYSPNOEA [None]
